FAERS Safety Report 8554010-3 (Version None)
Quarter: 2012Q3

REPORT INFORMATION
  Report Type: 
  Country: None (occurrence: None)
  Receive Date: 20120731
  Receipt Date: 20120723
  Transmission Date: 20120928
  Serious: Yes (Other)
  Sender: FDA-Public Use
  Company Number: ES-ABBOTT-12P-144-0903177-00

PATIENT
  Age: 49 Year
  Sex: Female
  Weight: 52 kg

DRUGS (3)
  1. HUMIRA [Suspect]
     Route: 058
     Dates: start: 20110301, end: 20120201
  2. HUMIRA [Suspect]
     Indication: PSORIASIS
     Dosage: INDUCTION DOSE
     Route: 058
     Dates: start: 20100601, end: 20100601
  3. HUMIRA [Suspect]
     Route: 058
     Dates: start: 20100601, end: 20110301

REACTIONS (2)
  - DNA ANTIBODY POSITIVE [None]
  - ANTINUCLEAR ANTIBODY POSITIVE [None]
